FAERS Safety Report 8966900 (Version 1)
Quarter: 2012Q4

REPORT INFORMATION
  Report Type: 
  Country: US (occurrence: US)
  Receive Date: 20121214
  Receipt Date: 20121214
  Transmission Date: 20130627
  Serious: Yes (Hospitalization, Other)
  Sender: FDA-Public Use
  Company Number: US-TEVA-375972USA

PATIENT
  Age: 34 Year
  Sex: Female
  Weight: 51.3 kg

DRUGS (1)
  1. SEASONIQUE [Suspect]
     Indication: CONTRACEPTION
     Dates: start: 2011

REACTIONS (6)
  - Chest discomfort [Unknown]
  - Chest discomfort [Unknown]
  - Palpitations [Unknown]
  - Dyspnoea [Unknown]
  - Myocardial infarction [Unknown]
  - Anxiety [Unknown]
